FAERS Safety Report 6306705-X (Version None)
Quarter: 2009Q3

REPORT INFORMATION
  Report Type: 
  Country: None (occurrence: None)
  Receive Date: 20090812
  Receipt Date: 20090513
  Transmission Date: 20100115
  Serious: No
  Sender: FDA-Public Use
  Company Number: A0784137A

PATIENT
  Sex: Female

DRUGS (1)
  1. VERAMYST [Suspect]
     Dates: start: 20090101

REACTIONS (2)
  - ABNORMAL SENSATION IN EYE [None]
  - EYE PRURITUS [None]
